FAERS Safety Report 7214284 (Version 5)
Quarter: 2013Q4

REPORT INFORMATION
  Report Type: Spontaneous
  Country: US (occurrence: US)
  Receive Date: 20091214
  Receipt Date: 20131224
  Transmission Date: 20140711
  Serious: Yes (Hospitalization, Other)
  Sender: FDA-Public Use
  Company Number: US-BAYER-200942046NA

PATIENT
  Age: 31 Year
  Sex: Female
  Weight: 81.63 kg

DRUGS (11)
  1. YAZ [Suspect]
     Indication: CONTRACEPTION
     Dosage: DAILY DOSE 1 DF
     Route: 048
     Dates: start: 200610, end: 20080127
  2. YAZ [Suspect]
     Indication: ACNE
     Dosage: UNK
     Dates: start: 200808, end: 20081101
  3. YAZ [Suspect]
     Indication: PREMENSTRUAL SYNDROME
  4. YAZ [Suspect]
     Indication: MOOD SWINGS
  5. YASMIN [Suspect]
     Indication: CONTRACEPTION
     Dosage: 1 DF (DAILY DOSE), QD, ORAL
     Route: 048
     Dates: start: 2001, end: 2006
  6. YASMIN [Suspect]
     Indication: ACNE
  7. YASMIN [Suspect]
     Indication: PREMENSTRUAL SYNDROME
  8. YASMIN [Suspect]
     Indication: MOOD SWINGS
  9. MULTI-VITAMIN [Concomitant]
     Dosage: UNK UNK, BID
  10. VITAMIN D [Concomitant]
  11. HYDROCODONE W/APAP [Concomitant]
     Dosage: 5/500

REACTIONS (5)
  - Cholelithiasis [Recovered/Resolved]
  - Cholecystitis [Recovered/Resolved]
  - Abdominal pain [Recovered/Resolved]
  - Vomiting [Recovered/Resolved]
  - Incision site pain [None]
